FAERS Safety Report 9024317 (Version 1)
Quarter: 2013Q1

REPORT INFORMATION
  Report Type: Spontaneous
  Country: BR (occurrence: BR)
  Receive Date: 20130121
  Receipt Date: 20130121
  Transmission Date: 20140127
  Serious: Yes (Other)
  Sender: FDA-Public Use
  Company Number: PHHY2012BR113019

PATIENT
  Sex: Female

DRUGS (4)
  1. DIOVAN HCT [Suspect]
     Indication: HYPERTENSION
     Dosage: 1 DF(320 MG VALS/25 MG HCT), BID
     Route: 048
  2. SUSTRATE [Concomitant]
     Indication: HEART RATE INCREASED
     Dosage: 2 DF, DAILY MORNING AND AFTERNOON
     Route: 048
  3. OPTIVE [Concomitant]
     Indication: EYE LUBRICATION THERAPY
     Dosage: 1 DF, DAILY
  4. VASTAREL [Concomitant]

REACTIONS (1)
  - Eye degenerative disorder [Unknown]
